FAERS Safety Report 6570191-5 (Version None)
Quarter: 2010Q1

REPORT INFORMATION
  Report Type: 
  Country: None (occurrence: None)
  Receive Date: 20100204
  Receipt Date: 20100122
  Transmission Date: 20100710
  Serious: No
  Sender: FDA-Public Use
  Company Number: CA-PURDUE-CAN_2009_0000919

PATIENT
  Sex: Female
  Weight: 72.562 kg

DRUGS (2)
  1. DILAUDID [Suspect]
     Indication: PAIN
  2. HUMIRA [Suspect]
     Dosage: 40 MG, SEE TEXT
     Route: 058
     Dates: start: 20090131

REACTIONS (1)
  - PRURITUS [None]
